FAERS Safety Report 8661193 (Version 4)
Quarter: 2013Q1

REPORT INFORMATION
  Report Type: Report from Study
  Country: JP (occurrence: JP)
  Receive Date: 20120711
  Receipt Date: 20130122
  Transmission Date: 20140127
  Serious: Yes (Other)
  Sender: FDA-Public Use
  Company Number: JP-009507513-2012SP034169

PATIENT
  Age: 50 Year
  Sex: Female
  Weight: 57 kg

DRUGS (9)
  1. PEGINTRON [Suspect]
     Indication: CHRONIC HEPATITIS C
     Dosage: 1.5 MICROGRAM PER KILOGRAM, QW
     Route: 058
     Dates: start: 20120502
  2. REBETOL [Suspect]
     Indication: CHRONIC HEPATITIS C
     Dosage: 600 MG, QD
     Route: 048
     Dates: start: 20120502, end: 20120522
  3. REBETOL [Suspect]
     Dosage: 200 MG, QD
     Route: 048
     Dates: start: 20120523
  4. TELAVIC [Suspect]
     Indication: CHRONIC HEPATITIS C
     Dosage: 2250 MG, QD
     Route: 048
     Dates: start: 20120502, end: 20120503
  5. TELAVIC [Suspect]
     Dosage: 1500 MG, QD
     Route: 048
     Dates: start: 20120504, end: 20120601
  6. ALLOPURINOL [Concomitant]
     Dosage: 3 DF, QD
  7. LEXOTAN [Concomitant]
     Indication: INSOMNIA
     Dosage: 2 MG/ DAY, AS NEEDED, 1 T IN ONE DOSE, BEFORE BEDTIME
     Route: 048
     Dates: start: 20120525
  8. AMOBAN [Concomitant]
     Indication: INSOMNIA
     Dosage: 10 MG/ DAY, AS NEEDED, 1T IN ONE DOSE, BEFORE BEDTIME
     Route: 048
     Dates: start: 20120519
  9. PERPHENAZINE MALEATE [Concomitant]
     Dosage: UNK
     Route: 048

REACTIONS (6)
  - Erythema [Recovered/Resolved]
  - Blister [Recovered/Resolved]
  - Nausea [None]
  - Insomnia [None]
  - Hyperuricaemia [None]
  - Anaemia [None]
